FAERS Safety Report 15761238 (Version 1)
Quarter: 2018Q4

REPORT INFORMATION
  Report Type: Spontaneous
  Country: SG (occurrence: SG)
  Receive Date: 20181226
  Receipt Date: 20181226
  Transmission Date: 20190205
  Serious: Yes (Other)
  Sender: FDA-Public Use
  Company Number: IND-SG-009507513-1812SGP007352

PATIENT
  Age: 18 Year
  Sex: Female

DRUGS (1)
  1. ARCOXIA [Suspect]
     Active Substance: ETORICOXIB
     Route: 048

REACTIONS (1)
  - Eye swelling [Unknown]

NARRATIVE: CASE EVENT DATE: 20180929
